FAERS Safety Report 4808947-9 (Version None)
Quarter: 2005Q4

REPORT INFORMATION
  Report Type: 
  Country: None (occurrence: None)
  Receive Date: 20051025
  Receipt Date: 20051013
  Transmission Date: 20060501
  Serious: Yes (Disabling)
  Sender: FDA-Public Use
  Company Number: US-ROCHE-421196

PATIENT
  Age: 47 Year
  Sex: Male
  Weight: 74 kg

DRUGS (7)
  1. VESANOID [Suspect]
     Route: 048
     Dates: start: 20050726, end: 20050920
  2. IDARUBICIN HCL [Concomitant]
     Route: 042
     Dates: start: 20050726, end: 20050728
  3. CYTARABINE [Concomitant]
     Route: 042
     Dates: start: 20050726, end: 20050801
  4. ABACAVIR SULFATE [Concomitant]
     Dosage: STARTED PRIOR TO ADMISSION
     Route: 048
  5. LOPINAVIR/RITONAVIR [Concomitant]
     Dosage: STARTED PRIOR TO ADMISSION
     Route: 048
  6. SUCRALFATE [Concomitant]
     Dosage: STARTED PRIOR TO ADMISSION
     Route: 048
  7. TENOFOVIR [Concomitant]
     Route: 048

REACTIONS (2)
  - DIFFICULTY IN WALKING [None]
  - NEUROPATHY PERIPHERAL [None]
